FAERS Safety Report 8790840 (Version 1)
Quarter: 2012Q4

REPORT INFORMATION
  Report Type: Spontaneous
  Country: FR (occurrence: None)
  Receive Date: 20120907
  Receipt Date: 20120907
  Transmission Date: 20130627
  Serious: Yes (Hospitalization)
  Sender: FDA-Public Use
  Company Number: 2012000203

PATIENT
  Age: 84 Year
  Sex: Female

DRUGS (6)
  1. ACEON (PERINDOPRIL ERBUMINE) TABLET [Suspect]
     Route: 048
     Dates: start: 20120101, end: 20120805
  2. PLAQUENIL [Suspect]
     Route: 048
     Dates: start: 20120710, end: 20120803
  3. REPAGLINIDE [Suspect]
     Route: 048
     Dates: end: 20120805
  4. CORTANCYL [Suspect]
     Route: 048
     Dates: start: 201201
  5. CORTANCYL [Suspect]
     Route: 048
     Dates: start: 201208, end: 201208
  6. CORTANCYL [Suspect]
     Route: 048
     Dates: start: 201208

REACTIONS (4)
  - Systemic lupus erythematosus [None]
  - Rash maculo-papular [None]
  - Pruritus [None]
  - Purpura [None]
